FAERS Safety Report 4570302-7 (Version None)
Quarter: 2005Q1

REPORT INFORMATION
  Report Type: 
  Country: None (occurrence: None)
  Receive Date: 20050204
  Receipt Date: 20041215
  Transmission Date: 20050727
  Serious: Yes (Hospitalization)
  Sender: FDA-Public Use
  Company Number: GBWYE237326NOV04

PATIENT
  Sex: Male
  Weight: 80.5 kg

DRUGS (4)
  1. ENBREL [Suspect]
     Indication: RHEUMATOID ARTHRITIS
     Route: 058
     Dates: start: 20000104
  2. PREDNISOLONE [Concomitant]
     Dates: start: 19881005
  3. VOLTAROL [Concomitant]
     Dates: start: 19950720
  4. LOSEC [Concomitant]
     Route: 048
     Dates: start: 19961107

REACTIONS (4)
  - CELLULITIS [None]
  - EPIGLOTTITIS [None]
  - PRODUCTIVE COUGH [None]
  - WOUND INFECTION STAPHYLOCOCCAL [None]
